FAERS Safety Report 6692831-2 (Version None)
Quarter: 2010Q2

REPORT INFORMATION
  Report Type: 
  Country: None (occurrence: None)
  Receive Date: 20100419
  Receipt Date: 20100407
  Transmission Date: 20101027
  Serious: Yes (Congenital Anomaly)
  Sender: FDA-Public Use
  Company Number: LEO-2010-00229

PATIENT
  Age: 42 Year
  Sex: Female
  Weight: 80 kg

DRUGS (11)
  1. INNOHEP [Suspect]
     Indication: ABORTION SPONTANEOUS
     Dosage: SEE IMAGE
     Route: 058
     Dates: start: 20051021, end: 20060112
  2. INNOHEP [Suspect]
     Indication: COMPLICATION OF PREGNANCY
     Dosage: SEE IMAGE
     Route: 058
     Dates: start: 20051021, end: 20060112
  3. INNOHEP [Suspect]
     Indication: PROPHYLAXIS
     Dosage: SEE IMAGE
     Route: 058
     Dates: start: 20051021, end: 20060112
  4. INNOHEP [Suspect]
     Indication: ABORTION SPONTANEOUS
     Dosage: SEE IMAGE
     Route: 058
     Dates: start: 20060112, end: 20060228
  5. INNOHEP [Suspect]
     Indication: COMPLICATION OF PREGNANCY
     Dosage: SEE IMAGE
     Route: 058
     Dates: start: 20060112, end: 20060228
  6. INNOHEP [Suspect]
     Indication: PROPHYLAXIS
     Dosage: SEE IMAGE
     Route: 058
     Dates: start: 20060112, end: 20060228
  7. INNOHEP [Suspect]
     Indication: ABORTION SPONTANEOUS
     Dosage: SEE IMAGE
     Route: 058
     Dates: start: 20020228, end: 20060508
  8. INNOHEP [Suspect]
     Indication: COMPLICATION OF PREGNANCY
     Dosage: SEE IMAGE
     Route: 058
     Dates: start: 20020228, end: 20060508
  9. INNOHEP [Suspect]
     Indication: PROPHYLAXIS
     Dosage: SEE IMAGE
     Route: 058
     Dates: start: 20020228, end: 20060508
  10. ASPIRIN [Concomitant]
  11. ANTICOAGULANT THERAPY [Concomitant]
     Indication: PROPHYLAXIS

REACTIONS (5)
  - ANTEPARTUM HAEMORRHAGE [None]
  - CAESAREAN SECTION [None]
  - DRUG EXPOSURE DURING PREGNANCY [None]
  - INTRA-UTERINE DEATH [None]
  - TWIN PREGNANCY [None]
